FAERS Safety Report 12982467 (Version 1)
Quarter: 2016Q4

REPORT INFORMATION
  Report Type: Spontaneous
  Country: US (occurrence: US)
  Receive Date: 20161128
  Receipt Date: 20161128
  Transmission Date: 20170207
  Serious: Yes (Other)
  Sender: FDA-Public Use
  Company Number: None

PATIENT
  Age: 20 Year
  Sex: Female
  Weight: 59 kg

DRUGS (1)
  1. DESTOLIT PERMETHRIN 5% [Suspect]
     Active Substance: PERMETHRIN
     Indication: ACARODERMATITIS
     Dosage: 1      QUANTITY:1 CREAM;?
     Route: 061
     Dates: start: 20161120, end: 20161121

REACTIONS (8)
  - Hypoaesthesia [None]
  - Paraesthesia [None]
  - Joint range of motion decreased [None]
  - Chest pain [None]
  - Activities of daily living impaired [None]
  - Neck pain [None]
  - Musculoskeletal pain [None]
  - Pain in extremity [None]

NARRATIVE: CASE EVENT DATE: 20161121
